FAERS Safety Report 11077290 (Version 1)
Quarter: 2015Q2

REPORT INFORMATION
  Report Type: Spontaneous
  Country: IT (occurrence: IT)
  Receive Date: 20150429
  Receipt Date: 20150429
  Transmission Date: 20150821
  Serious: Yes (Death, Other)
  Sender: FDA-Public Use
  Company Number: PHHY2015IT050008

PATIENT
  Age: 65 Year
  Sex: Male

DRUGS (6)
  1. NILOTINIB [Suspect]
     Active Substance: NILOTINIB
     Indication: MYELOPROLIFERATIVE DISORDER
     Dosage: 400 MG, BID
     Route: 065
     Dates: start: 200710
  2. IMATINIB [Suspect]
     Active Substance: IMATINIB
     Indication: HYPEREOSINOPHILIC SYNDROME
     Dosage: 400 MG, QD
     Route: 065
  3. IMATINIB [Suspect]
     Active Substance: IMATINIB
     Dosage: 100 MG, QD
     Route: 065
     Dates: start: 200606
  4. NILOTINIB [Suspect]
     Active Substance: NILOTINIB
     Dosage: 400 MG, QD
     Route: 065
  5. IMATINIB [Suspect]
     Active Substance: IMATINIB
     Indication: MYELOPROLIFERATIVE DISORDER
     Dosage: 100 MG, QD
     Route: 065
     Dates: start: 200505
  6. IMATINIB [Suspect]
     Active Substance: IMATINIB
     Dosage: 400 MG, QD
     Route: 065

REACTIONS (11)
  - Pancreatic carcinoma [Fatal]
  - Second primary malignancy [Fatal]
  - Abdominal pain [Fatal]
  - Drug resistance [Unknown]
  - Parosmia [Recovering/Resolving]
  - Weight decreased [Fatal]
  - Myeloproliferative disorder [Unknown]
  - Recurrent cancer [Unknown]
  - Treatment failure [Unknown]
  - Peripheral arterial occlusive disease [Unknown]
  - Skin lesion [Unknown]

NARRATIVE: CASE EVENT DATE: 200601
